FAERS Safety Report 14025621 (Version 1)
Quarter: 2017Q3

REPORT INFORMATION
  Report Type: Spontaneous
  Country: US (occurrence: US)
  Receive Date: 20170929
  Receipt Date: 20170929
  Transmission Date: 20171128
  Serious: No
  Sender: FDA-Public Use
  Company Number: US-BION-006487

PATIENT
  Age: 83 Year
  Sex: Female
  Weight: 52.16 kg

DRUGS (1)
  1. IMODIUM A-D [Suspect]
     Active Substance: LOPERAMIDE HYDROCHLORIDE
     Indication: DIARRHOEA
     Dosage: 1 SOFTGEL A DAY
     Route: 048
     Dates: start: 20170629

REACTIONS (1)
  - Incorrect dose administered [Not Recovered/Not Resolved]
